FAERS Safety Report 8232589-9 (Version None)
Quarter: 2012Q1

REPORT INFORMATION
  Report Type: 
  Country: None (occurrence: None)
  Receive Date: 20120323
  Receipt Date: 20120321
  Transmission Date: 20120608
  Serious: Yes (Death, Hospitalization, Other)
  Sender: FDA-Public Use
  Company Number: AU-B.I. PHARMACEUTICALS,INC./RIDGEFIELD-2012-AU-00377AU

PATIENT
  Sex: Female

DRUGS (6)
  1. PANTOPRAZOLE [Concomitant]
     Indication: GASTROOESOPHAGEAL REFLUX DISEASE
     Dosage: 40 MG
  2. PRADAXA [Suspect]
     Indication: ATRIAL FIBRILLATION
     Dosage: 220 MG
     Dates: start: 20110929
  3. BISOPROLOL FUMARATE [Concomitant]
     Dosage: 10 MG
  4. CEPHULEXIM [Concomitant]
     Dosage: 250 MG
  5. PANTOPRAZOLE [Concomitant]
     Indication: HIATUS HERNIA
  6. FUROSEMIDE [Concomitant]
     Dosage: 80 MG

REACTIONS (5)
  - GASTROINTESTINAL HAEMORRHAGE [None]
  - RENAL FAILURE ACUTE [None]
  - SHOCK HAEMORRHAGIC [None]
  - URINARY TRACT INFECTION [None]
  - HYPOTENSION [None]
